FAERS Safety Report 25121849 (Version 1)
Quarter: 2025Q1

REPORT INFORMATION
  Report Type: Spontaneous
  Country: US (occurrence: US)
  Receive Date: 20250326
  Receipt Date: 20250326
  Transmission Date: 20250409
  Serious: No
  Sender: AMGEN
  Company Number: US-AMGEN-USASP2025055622

PATIENT
  Sex: Female

DRUGS (3)
  1. PREDNISONE [Suspect]
     Active Substance: PREDNISONE
     Indication: Lupus miliaris disseminatus faciei
     Route: 065
  2. MINOCYCLINE [Concomitant]
     Active Substance: MINOCYCLINE HYDROCHLORIDE
     Indication: Lupus miliaris disseminatus faciei
     Dosage: 100 MILLIGRAM, BID
     Route: 065
  3. PIMECROLIMUS [Concomitant]
     Active Substance: PIMECROLIMUS
     Indication: Lupus miliaris disseminatus faciei
     Dosage: 1 PERCENT, BID
     Route: 061

REACTIONS (3)
  - Drug ineffective for unapproved indication [Unknown]
  - Lupus miliaris disseminatus faciei [Unknown]
  - Off label use [Unknown]
